FAERS Safety Report 9566019 (Version 1)
Quarter: 2013Q3

REPORT INFORMATION
  Report Type: Report from Study
  Country: US (occurrence: US)
  Receive Date: 20130930
  Receipt Date: 20130930
  Transmission Date: 20140515
  Serious: Yes (Death, Other)
  Sender: FDA-Public Use
  Company Number: US-PFIZER INC-2013275317

PATIENT
  Age: 41 Year
  Sex: Male

DRUGS (6)
  1. ALPRAZOLAM [Suspect]
     Dosage: UNK
  2. GABAPENTIN [Suspect]
     Dosage: UNK
  3. OXYCODONE HYDROCHLORIDE [Suspect]
  4. METHADONE [Suspect]
     Dosage: UNK
  5. HYDROCODONE [Suspect]
  6. HEROIN [Suspect]

REACTIONS (4)
  - Overdose [Fatal]
  - Toxicity to various agents [Fatal]
  - Drug abuser [Unknown]
  - Pulmonary oedema [Unknown]
